FAERS Safety Report 9160374 (Version 1)
Quarter: 2013Q1

REPORT INFORMATION
  Report Type: Report from Study
  Country: ZA (occurrence: ZA)
  Receive Date: 20130313
  Receipt Date: 20130313
  Transmission Date: 20140127
  Serious: Yes (Hospitalization)
  Sender: FDA-Public Use
  Company Number: ZA-ROCHE-1201494

PATIENT
  Age: 48 Year
  Sex: 0

DRUGS (3)
  1. MIRCERA [Suspect]
     Indication: PRODUCT USED FOR UNKNOWN INDICATION
     Route: 065
     Dates: start: 201110
  2. MIRCERA [Suspect]
     Route: 065
     Dates: start: 201112
  3. MIRCERA [Suspect]
     Route: 065
     Dates: start: 201209

REACTIONS (1)
  - Parathyroidectomy [Recovered/Resolved]
